FAERS Safety Report 8169520-0 (Version None)
Quarter: 2012Q1

REPORT INFORMATION
  Report Type: 
  Country: None (occurrence: None)
  Receive Date: 20120228
  Receipt Date: 20120216
  Transmission Date: 20120608
  Serious: Yes (Hospitalization)
  Sender: FDA-Public Use
  Company Number: US-BAYER-2011-075420

PATIENT
  Age: 36 Year
  Sex: Female
  Weight: 58.957 kg

DRUGS (8)
  1. ACCUPRIL [Concomitant]
     Dosage: UNK
     Dates: start: 20050425
  2. KEPPRA [Concomitant]
     Dosage: UNK
     Dates: start: 20050425
  3. YAZ [Suspect]
     Indication: CONTRACEPTION
     Dosage: UNK
     Dates: start: 20040101, end: 20060101
  4. YASMIN [Suspect]
     Indication: CONTRACEPTION
     Dosage: UNK
     Dates: start: 20040101, end: 20060101
  5. ENALAPRIL MALEATE [Concomitant]
  6. PHENOBARBITAL TAB [Concomitant]
     Indication: CONVULSION
     Dosage: UNK
     Dates: start: 20010101, end: 20110101
  7. XALATAN [Concomitant]
     Dosage: UNK
     Dates: start: 20050425
  8. XALATAN [Concomitant]

REACTIONS (4)
  - CHOLECYSTITIS [None]
  - GALLBLADDER INJURY [None]
  - INJURY [None]
  - PAIN [None]
